FAERS Safety Report 21032495 (Version 1)
Quarter: 2022Q2

REPORT INFORMATION
  Report Type: Spontaneous
  Country: US (occurrence: None)
  Receive Date: 20220630
  Receipt Date: 20220630
  Transmission Date: 20220720
  Serious: No
  Sender: FDA-Public Use
  Company Number: None

PATIENT
  Age: 73 Year
  Sex: Female
  Weight: 128.0 kg

DRUGS (2)
  1. TEMOZOLOMIDE [Suspect]
     Active Substance: TEMOZOLOMIDE
     Indication: Malignant melanoma
     Dosage: FREQUENCY : DAILY;?
     Route: 048
     Dates: end: 20220620
  2. TEMOZOLOMIDE [Suspect]
     Active Substance: TEMOZOLOMIDE
     Indication: Malignant melanoma
     Dosage: FREQUENCY : DAILY;?
     Route: 048
     Dates: end: 20220630

REACTIONS (2)
  - Disease progression [None]
  - Therapy cessation [None]
